FAERS Safety Report 7283782-3 (Version None)
Quarter: 2011Q1

REPORT INFORMATION
  Report Type: 
  Country: None (occurrence: None)
  Receive Date: 20110209
  Receipt Date: 20110131
  Transmission Date: 20110831
  Serious: Yes (Hospitalization)
  Sender: FDA-Public Use
  Company Number: US-MERCK-1102USA00217

PATIENT
  Sex: Female

DRUGS (3)
  1. FOSAMAX [Suspect]
     Route: 048
  2. DIDRONEL [Suspect]
     Route: 048
  3. BONIVA [Suspect]
     Route: 048

REACTIONS (6)
  - GASTRITIS ATROPHIC [None]
  - GASTRIC PH INCREASED [None]
  - ABDOMINAL PAIN UPPER [None]
  - HAEMORRHAGE [None]
  - MALABSORPTION [None]
  - GASTROINTESTINAL DISORDER [None]
